FAERS Safety Report 16544637 (Version 1)
Quarter: 2019Q3

REPORT INFORMATION
  Report Type: Spontaneous
  Country: US (occurrence: US)
  Receive Date: 20190708
  Receipt Date: 20190708
  Transmission Date: 20191004
  Serious: Yes (Other)
  Sender: FDA-Public Use
  Company Number: None

PATIENT
  Age: 7 Year
  Sex: Male
  Weight: 30 kg

DRUGS (1)
  1. PURALUBE [Suspect]
     Active Substance: MINERAL OIL\PETROLATUM
     Indication: DRY EYE
     Route: 047
     Dates: start: 20190623, end: 20190705

REACTIONS (3)
  - Recalled product [None]
  - Hordeolum [None]
  - Product sterility lacking [None]

NARRATIVE: CASE EVENT DATE: 20190707
